FAERS Safety Report 23128496 (Version 2)
Quarter: 2023Q4

REPORT INFORMATION
  Report Type: Report from Study
  Country: BR (occurrence: BR)
  Receive Date: 20231031
  Receipt Date: 20231211
  Transmission Date: 20240109
  Serious: Yes (Hospitalization)
  Sender: FDA-Public Use
  Company Number: BR-002147023-NVSC2023BR229972

PATIENT
  Age: 84 Year
  Sex: Female
  Weight: 46 kg

DRUGS (1)
  1. ENTRESTO [Suspect]
     Active Substance: SACUBITRIL\VALSARTAN
     Indication: Cardiac failure
     Dosage: 1 DOSAGE FORM, BID (97/103 MG)
     Route: 048
     Dates: start: 202112

REACTIONS (7)
  - Headache [Recovered/Resolved]
  - Syncope [Recovered/Resolved]
  - Weight decreased [Recovering/Resolving]
  - Muscular weakness [Recovering/Resolving]
  - Anaemia [Recovered/Resolved]
  - Cough [Not Recovered/Not Resolved]
  - Asthenia [Recovering/Resolving]

NARRATIVE: CASE EVENT DATE: 20220101
